FAERS Safety Report 9130219 (Version 1)
Quarter: 2013Q1

REPORT INFORMATION
  Report Type: Spontaneous
  Country: US (occurrence: US)
  Receive Date: 20130228
  Receipt Date: 20130228
  Transmission Date: 20140127
  Serious: No
  Sender: FDA-Public Use
  Company Number: US-PFIZER INC-2013071080

PATIENT
  Age: 75 Year
  Sex: Female

DRUGS (7)
  1. LIDOCAINE HCL [Suspect]
     Dosage: UNK
  2. TRAMADOL HCL [Suspect]
     Dosage: UNK
  3. IODINE [Suspect]
     Dosage: UNK
  4. CYSTOSPAZ [Suspect]
     Dosage: UNK
  5. CIPRO [Suspect]
     Dosage: UNK
  6. HYDROCODONE [Suspect]
     Dosage: UNK
  7. PSEUDOEPHEDRINE [Suspect]
     Dosage: UNK

REACTIONS (1)
  - Drug hypersensitivity [Unknown]
